FAERS Safety Report 26011044 (Version 1)
Quarter: 2025Q4

REPORT INFORMATION
  Report Type: Spontaneous
  Country: CH (occurrence: CH)
  Receive Date: 20251107
  Receipt Date: 20251107
  Transmission Date: 20260117
  Serious: Yes (Other)
  Sender: CHEPLAPHARM
  Company Number: None

PATIENT
  Age: 61 Year
  Sex: Female

DRUGS (4)
  1. QUETIAPINE [Suspect]
     Active Substance: QUETIAPINE
     Dosage: (RECENTLY REDUCED FROM 75 MG IN THE EVENING TO 50 MG IN THE EVENING)?DAILY DOSE: 50 MILLIGRAM
  2. QUETIAPINE [Suspect]
     Active Substance: QUETIAPINE
     Dosage: DAILY DOSE: 75 MILLIGRAM
  3. FLUOXETINE HYDROCHLORIDE [Concomitant]
     Active Substance: FLUOXETINE HYDROCHLORIDE
  4. XANAX [Concomitant]
     Active Substance: ALPRAZOLAM

REACTIONS (1)
  - Blepharospasm [Unknown]

NARRATIVE: CASE EVENT DATE: 20250201
